FAERS Safety Report 26136253 (Version 1)
Quarter: 2025Q4

REPORT INFORMATION
  Report Type: Spontaneous
  Country: AR (occurrence: AR)
  Receive Date: 20251209
  Receipt Date: 20251209
  Transmission Date: 20260117
  Serious: Yes (Hospitalization, Other)
  Sender: NOVARTIS
  Company Number: AR-002147023-NVSC2025AR179410

PATIENT
  Age: 1 Year
  Sex: Male

DRUGS (4)
  1. MEKINIST [Suspect]
     Active Substance: TRAMETINIB DIMETHYL SULFOXIDE
     Indication: Cerebellar tumour
     Dosage: 0.5 MG/KG, QD
     Route: 048
     Dates: start: 20250517, end: 20251117
  2. MEKINIST [Suspect]
     Active Substance: TRAMETINIB DIMETHYL SULFOXIDE
     Dosage: UNK
     Route: 065
     Dates: start: 20251130
  3. TAFINLAR [Suspect]
     Active Substance: DABRAFENIB MESYLATE
     Indication: Cerebellar tumour
     Dosage: 75 MG, QD
     Route: 048
     Dates: start: 20250517, end: 20251117
  4. TAFINLAR [Suspect]
     Active Substance: DABRAFENIB MESYLATE
     Dosage: UNK
     Route: 065
     Dates: start: 20251130

REACTIONS (4)
  - Adenovirus infection [Unknown]
  - Pyrexia [Recovered/Resolved]
  - Metastases to meninges [Unknown]
  - Ganglioglioma [Unknown]

NARRATIVE: CASE EVENT DATE: 20251111
